FAERS Safety Report 26013767 (Version 1)
Quarter: 2025Q4

REPORT INFORMATION
  Report Type: Spontaneous
  Country: US (occurrence: US)
  Receive Date: 20251107
  Receipt Date: 20251107
  Transmission Date: 20260118
  Serious: No
  Sender: ANI
  Company Number: US-ANIPHARMA-2025-US-038642

PATIENT
  Age: 52 Year
  Sex: Male
  Weight: 83.92 kg

DRUGS (7)
  1. CORTICOTROPIN [Suspect]
     Active Substance: CORTICOTROPIN
     Indication: Sarcoidosis
     Dosage: INJECT 40 UNITS (0.5 ML) UNDER THE SKIN TWICE A WEEK
     Route: 058
     Dates: start: 20250708, end: 20251021
  2. AMBIEN [Concomitant]
     Active Substance: ZOLPIDEM TARTRATE
  3. XANAX [Concomitant]
     Active Substance: ALPRAZOLAM
  4. VENLAFAXINE HYDROCHLORIDE [Concomitant]
     Active Substance: VENLAFAXINE HYDROCHLORIDE
  5. METFORMIN [Concomitant]
     Active Substance: METFORMIN HYDROCHLORIDE
  6. ATENOLOL [Concomitant]
     Active Substance: ATENOLOL
  7. CIALIS [Concomitant]
     Active Substance: TADALAFIL

REACTIONS (6)
  - Insomnia [Recovered/Resolved]
  - Therapy cessation [Recovered/Resolved]
  - Blood glucose increased [Not Recovered/Not Resolved]
  - Contraindicated product administered [Recovered/Resolved]
  - Product dose omission issue [Recovered/Resolved]
  - Mood altered [Recovered/Resolved]

NARRATIVE: CASE EVENT DATE: 20250729
